FAERS Safety Report 16533865 (Version 2)
Quarter: 2019Q4

REPORT INFORMATION
  Report Type: Spontaneous
  Country: US (occurrence: US)
  Receive Date: 20190704
  Receipt Date: 20191025
  Transmission Date: 20200122
  Serious: Yes (Other)
  Sender: FDA-Public Use
  Company Number: US-ASTRAZENECA-2019SE94904

PATIENT
  Age: 28338 Day
  Sex: Male

DRUGS (25)
  1. GLIPIZIDE. [Concomitant]
     Active Substance: GLIPIZIDE
  2. ACTOS [Concomitant]
     Active Substance: PIOGLITAZONE HYDROCHLORIDE
  3. MICARDIS [Concomitant]
     Active Substance: TELMISARTAN
  4. PIOGLITAZONE. [Concomitant]
     Active Substance: PIOGLITAZONE
  5. OXYCODONE [Concomitant]
     Active Substance: OXYCODONE
  6. PIROXICAM. [Concomitant]
     Active Substance: PIROXICAM
  7. ACULAR [Concomitant]
     Active Substance: KETOROLAC TROMETHAMINE
  8. NEXIUM [Suspect]
     Active Substance: ESOMEPRAZOLE MAGNESIUM
     Indication: GASTROOESOPHAGEAL REFLUX DISEASE
     Route: 048
     Dates: start: 20060802, end: 20150508
  9. DICLOFENAC [Concomitant]
     Active Substance: DICLOFENAC
  10. FUROSEMIDE. [Concomitant]
     Active Substance: FUROSEMIDE
  11. RIFAMPIN. [Concomitant]
     Active Substance: RIFAMPIN
  12. ZYMAR [Concomitant]
     Active Substance: GATIFLOXACIN
  13. AVELOX [Concomitant]
     Active Substance: MOXIFLOXACIN HYDROCHLORIDE
  14. NEXIUM [Suspect]
     Active Substance: ESOMEPRAZOLE MAGNESIUM
     Indication: GASTROOESOPHAGEAL REFLUX DISEASE
     Route: 048
     Dates: start: 20060802, end: 20150408
  15. AZITHROMYCIN ANHYDROUS. [Concomitant]
     Active Substance: AZITHROMYCIN ANHYDROUS
  16. NEXIUM [Suspect]
     Active Substance: ESOMEPRAZOLE MAGNESIUM
     Indication: GASTROOESOPHAGEAL REFLUX DISEASE
     Dosage: GENERIC
     Route: 065
     Dates: start: 20150804, end: 20151104
  17. HUMALOG [Concomitant]
     Active Substance: INSULIN LISPRO
     Indication: DIABETES MELLITUS
     Dates: start: 2014
  18. AMITRIPTYLINE [Concomitant]
     Active Substance: AMITRIPTYLINE
  19. ELAVIL [Concomitant]
     Active Substance: AMITRIPTYLINE HYDROCHLORIDE
  20. LEVEMIR [Concomitant]
     Active Substance: INSULIN DETEMIR
     Indication: DIABETES MELLITUS
     Dates: start: 2009
  21. OXYCONTIN [Concomitant]
     Active Substance: OXYCODONE HYDROCHLORIDE
  22. METHOCARBAMOL. [Concomitant]
     Active Substance: METHOCARBAMOL
  23. METFORMIN [Concomitant]
     Active Substance: METFORMIN HYDROCHLORIDE
  24. CIALIS [Concomitant]
     Active Substance: TADALAFIL
  25. LORTAB [Concomitant]
     Active Substance: ACETAMINOPHEN\HYDROCODONE BITARTRATE

REACTIONS (1)
  - Acute kidney injury [Not Recovered/Not Resolved]

NARRATIVE: CASE EVENT DATE: 20130808
